FAERS Safety Report 9149063 (Version 1)
Quarter: 2013Q1

REPORT INFORMATION
  Report Type: Spontaneous
  Country: US (occurrence: US)
  Receive Date: 20130308
  Receipt Date: 20130308
  Transmission Date: 20140127
  Serious: No
  Sender: FDA-Public Use
  Company Number: US-BAYER-2013-028872

PATIENT
  Age: 62 Year
  Sex: Female
  Weight: 61 kg

DRUGS (2)
  1. ALEVE CAPLET/TABLET,MIDOL EXTENDED RELIEF CAPLET [Suspect]
     Indication: ARTHRITIS
     Dosage: 3 DF, ONCE
     Route: 048
     Dates: start: 201210, end: 201210
  2. MULTI VITAMIN [Concomitant]

REACTIONS (2)
  - Inappropriate schedule of drug administration [None]
  - Therapeutic response decreased [None]
